FAERS Safety Report 7628970-9 (Version None)
Quarter: 2011Q3

REPORT INFORMATION
  Report Type: 
  Country: None (occurrence: None)
  Receive Date: 20110715
  Receipt Date: 20110630
  Transmission Date: 20111222
  Serious: Yes (Hospitalization)
  Sender: FDA-Public Use
  Company Number: 2011AP001368

PATIENT
  Age: 85 Year
  Sex: Male

DRUGS (7)
  1. WARFARIN SODIUM [Concomitant]
  2. CITALOPRAM (CITALOPRAM) [Suspect]
     Indication: DEPRESSION
     Dosage: 20 MG; PO
     Route: 048
  3. OMEPRAZOLE (OMEPRAZOLEA) [Concomitant]
  4. FUROSEMIDE [Concomitant]
  5. AMLODIPINE [Concomitant]
  6. PHENOBARBITAL TAB [Concomitant]
  7. SIMVASTATIN [Concomitant]

REACTIONS (1)
  - PETIT MAL EPILEPSY [None]
